FAERS Safety Report 16474786 (Version 1)
Quarter: 2019Q3

REPORT INFORMATION
  Report Type: Spontaneous
  Country: US (occurrence: US)
  Receive Date: 20190624
  Receipt Date: 20190624
  Transmission Date: 20191004
  Serious: Yes (Other)
  Sender: FDA-Public Use
  Company Number: None

PATIENT
  Age: 48 Year
  Sex: Male
  Weight: 85.95 kg

DRUGS (1)
  1. DESMOPRESSIN ACETATE .1MG TB MFR APOTEX [Suspect]
     Active Substance: DESMOPRESSIN
     Indication: DIABETES INSIPIDUS
     Dosage: ?          QUANTITY:135 TABLET(S);?
     Route: 048
     Dates: start: 20190419, end: 20190616

REACTIONS (7)
  - Dry mouth [None]
  - Myalgia [None]
  - Product substitution issue [None]
  - Asthenia [None]
  - Pollakiuria [None]
  - Dizziness [None]
  - Confusional state [None]

NARRATIVE: CASE EVENT DATE: 20190616
